FAERS Safety Report 24905722 (Version 1)
Quarter: 2025Q1

REPORT INFORMATION
  Report Type: Report from Study
  Country: US (occurrence: US)
  Receive Date: 20250130
  Receipt Date: 20250130
  Transmission Date: 20250409
  Serious: No
  Sender: HRA PHARMA
  Company Number: US-ORG100014127-2024000192

PATIENT
  Age: 69 Year
  Sex: Male

DRUGS (5)
  1. METOPIRONE [Suspect]
     Active Substance: METYRAPONE
     Indication: Adrenal gland cancer
     Dosage: 250 MG; 3 CAPSULES EVERY 8 HOURS (3 TIMES DAILY)
     Dates: start: 20220902
  2. Lysodren tab 500 mg [Concomitant]
     Indication: Adrenal gland cancer
     Dosage: 500 MG; 1 TABLET TWICE DAILY
     Route: 048
     Dates: start: 20220719
  3. Lysodren tab 500 mg [Concomitant]
     Indication: Adrenal gland cancer
     Dosage: 500 MG; 2 TABLETS TWICE DAILY
     Route: 048
  4. Lysodren tab 500 mg [Concomitant]
     Indication: Adrenal gland cancer
     Dosage: 500 MG; 3 TABLETS TWICE DAILY
     Route: 048
  5. Lysodren tab 500 mg [Concomitant]
     Indication: Adrenal gland cancer
     Dosage: 500 MG; 4 TABLETS TWICE DAILY
     Route: 048

REACTIONS (1)
  - Off label use [Recovered/Resolved]
